FAERS Safety Report 7290778-4 (Version None)
Quarter: 2011Q1

REPORT INFORMATION
  Report Type: 
  Country: None (occurrence: None)
  Receive Date: 20110214
  Receipt Date: 20110204
  Transmission Date: 20110831
  Serious: Yes (Hospitalization)
  Sender: FDA-Public Use
  Company Number: US-ALEXION-A201100146

PATIENT
  Sex: Female

DRUGS (1)
  1. SOLIRIS [Suspect]
     Indication: PAROXYSMAL NOCTURNAL HAEMOGLOBINURIA
     Dosage: UNK
     Route: 042

REACTIONS (7)
  - FULL BLOOD COUNT DECREASED [None]
  - DEHYDRATION [None]
  - DYSPHAGIA [None]
  - ABDOMINAL PAIN [None]
  - ASTHENIA [None]
  - CIRCULATORY COLLAPSE [None]
  - NASOPHARYNGITIS [None]
